FAERS Safety Report 5997343-7 (Version None)
Quarter: 2008Q4

REPORT INFORMATION
  Report Type: 
  Country: None (occurrence: None)
  Receive Date: 20081212
  Receipt Date: 20081110
  Transmission Date: 20090506
  Serious: No
  Sender: FDA-Public Use
  Company Number: US-ABBOTT-08P-163-0487030-00

PATIENT
  Sex: Female
  Weight: 108.96 kg

DRUGS (3)
  1. HUMIRA [Suspect]
     Indication: RHEUMATOID ARTHRITIS
     Route: 058
     Dates: start: 20071101
  2. VICODIN [Concomitant]
     Indication: PAIN
     Route: 048
  3. PROZAC [Concomitant]
     Indication: ANXIETY
     Route: 048

REACTIONS (2)
  - INCORRECT DOSE ADMINISTERED [None]
  - PAIN [None]
